FAERS Safety Report 25822966 (Version 3)
Quarter: 2025Q4

REPORT INFORMATION
  Report Type: Spontaneous
  Country: US (occurrence: US)
  Receive Date: 20250919
  Receipt Date: 20251008
  Transmission Date: 20260118
  Serious: Yes (Life-Threatening, Hospitalization, Disabling, Other)
  Sender: ACCORD
  Company Number: US-Accord-505328

PATIENT
  Age: 75 Year
  Sex: Female

DRUGS (1)
  1. SERTRALINE [Suspect]
     Active Substance: SERTRALINE HYDROCHLORIDE
     Indication: Product used for unknown indication
     Dosage: 150 MG DAILY FOR 20 YEARS

REACTIONS (2)
  - Multiple acyl-coenzyme A dehydrogenase deficiency [Recovering/Resolving]
  - Myopathy [Recovered/Resolved]
